FAERS Safety Report 18709144 (Version 2)
Quarter: 2021Q1

REPORT INFORMATION
  Report Type: Spontaneous
  Country: US (occurrence: US)
  Receive Date: 20210107
  Receipt Date: 20210302
  Transmission Date: 20210419
  Serious: No
  Sender: FDA-Public Use
  Company Number: US-ASTRAZENECA-2020SF74455

PATIENT
  Sex: Female
  Weight: 63.5 kg

DRUGS (1)
  1. BYDUREON BCISE [Suspect]
     Active Substance: EXENATIDE
     Indication: TYPE 2 DIABETES MELLITUS
     Route: 065
     Dates: start: 2019

REACTIONS (4)
  - Device defective [Unknown]
  - Product use issue [Unknown]
  - Device leakage [Unknown]
  - Injection site mass [Unknown]
